FAERS Safety Report 4843154-5 (Version None)
Quarter: 2005Q4

REPORT INFORMATION
  Report Type: 
  Country: None (occurrence: None)
  Receive Date: 20051201
  Receipt Date: 20051123
  Transmission Date: 20060501
  Serious: Yes (Death)
  Sender: FDA-Public Use
  Company Number: AT-ABBOTT-05P-009-0318120-00

PATIENT
  Sex: Female
  Weight: 65.5 kg

DRUGS (4)
  1. ZEMPLAR [Suspect]
     Indication: HYPERPARATHYROIDISM
     Dates: start: 20050907
  2. ANTIPHOSL [Concomitant]
     Indication: DRUG USE FOR UNKNOWN INDICATION
  3. DREISACARB [Concomitant]
     Indication: DRUG USE FOR UNKNOWN INDICATION
  4. CALCITRIOL [Concomitant]
     Indication: DRUG USE FOR UNKNOWN INDICATION

REACTIONS (2)
  - DIABETIC GANGRENE [None]
  - SEPSIS [None]
